FAERS Safety Report 11420921 (Version 3)
Quarter: 2015Q4

REPORT INFORMATION
  Report Type: Spontaneous
  Country: BR (occurrence: BR)
  Receive Date: 20150826
  Receipt Date: 20151102
  Transmission Date: 20160304
  Serious: Yes (Other)
  Sender: FDA-Public Use
  Company Number: BR-PFIZER INC-2013109339

PATIENT
  Age: 58 Year
  Sex: Male
  Weight: 70 kg

DRUGS (7)
  1. ROSUVASTATIN [Concomitant]
     Active Substance: ROSUVASTATIN
     Indication: BLOOD CHOLESTEROL ABNORMAL
     Dosage: UNK
     Dates: start: 2014
  2. OMEPRAZOLE. [Concomitant]
     Active Substance: OMEPRAZOLE
     Indication: ABDOMINAL DISCOMFORT
     Dosage: 20 MG, UNK
     Dates: start: 2013
  3. SIMVASTATIN. [Concomitant]
     Active Substance: SIMVASTATIN
     Dosage: UNK
  4. GLIFAGE [Concomitant]
     Active Substance: METFORMIN HYDROCHLORIDE
     Dosage: 500, UNK
  5. SUTENT [Suspect]
     Active Substance: SUNITINIB MALATE
     Indication: METASTATIC RENAL CELL CARCINOMA
     Dosage: 2 TABLETS OF 25 MG (50 MG), CYCLIC (4X2, USING FOR 28 DAYS AND STOPPING FOR 14 DAYS)
     Route: 048
     Dates: start: 20120910
  6. SUTENT [Suspect]
     Active Substance: SUNITINIB MALATE
     Dosage: UNK
  7. LEVOTHYROXINE. [Concomitant]
     Active Substance: LEVOTHYROXINE
     Dosage: 75 ?G, UNK

REACTIONS (31)
  - Metastatic renal cell carcinoma [Unknown]
  - Single functional kidney [Not Recovered/Not Resolved]
  - Diarrhoea [Not Recovered/Not Resolved]
  - Migraine [Not Recovered/Not Resolved]
  - Abdominal pain upper [Unknown]
  - Disease progression [Unknown]
  - Platelet count abnormal [Not Recovered/Not Resolved]
  - Aphthous ulcer [Not Recovered/Not Resolved]
  - Fatigue [Not Recovered/Not Resolved]
  - Asthenia [Not Recovered/Not Resolved]
  - Skin discolouration [Not Recovered/Not Resolved]
  - Gingival disorder [Not Recovered/Not Resolved]
  - Depressed mood [Not Recovered/Not Resolved]
  - Blood cholesterol abnormal [Unknown]
  - Miliaria [Not Recovered/Not Resolved]
  - Yellow skin [Not Recovered/Not Resolved]
  - Flatulence [Not Recovered/Not Resolved]
  - Nasal disorder [Not Recovered/Not Resolved]
  - Hypothyroidism [Unknown]
  - Blood pressure increased [Not Recovered/Not Resolved]
  - Hair colour changes [Not Recovered/Not Resolved]
  - Anorectal discomfort [Not Recovered/Not Resolved]
  - Insomnia [Not Recovered/Not Resolved]
  - Weight decreased [Unknown]
  - Reflux gastritis [Not Recovered/Not Resolved]
  - Mouth injury [Not Recovered/Not Resolved]
  - Haematochezia [Unknown]
  - Epistaxis [Not Recovered/Not Resolved]
  - Feeding disorder [Not Recovered/Not Resolved]
  - Tooth disorder [Not Recovered/Not Resolved]
  - Diabetes mellitus [Unknown]

NARRATIVE: CASE EVENT DATE: 2013
